FAERS Safety Report 8200517-8 (Version None)
Quarter: 2012Q1

REPORT INFORMATION
  Report Type: 
  Country: None (occurrence: None)
  Receive Date: 20120301
  Receipt Date: 20120217
  Transmission Date: 20120608
  Serious: Yes (Hospitalization)
  Sender: FDA-Public Use
  Company Number: 2012031165

PATIENT
  Age: 66 Year
  Sex: Female
  Weight: 51.7101 kg

DRUGS (24)
  1. HIZENTRA [Suspect]
  2. LEFLUNOMIDE [Concomitant]
  3. NIACIN [Concomitant]
  4. CLONAZEPAM [Concomitant]
  5. PROGRAF [Concomitant]
  6. EPOGEN [Concomitant]
  7. NEXIUM [Concomitant]
  8. HIZENTRA [Suspect]
  9. FISH OIL (FISH OIL) [Concomitant]
  10. COREG [Concomitant]
  11. CLONIDINE [Concomitant]
  12. LISINOPRIL [Concomitant]
  13. HIZENTRA [Suspect]
     Indication: IMMUNODEFICIENCY COMMON VARIABLE
     Dosage: SEE IMAGE
     Route: 058
     Dates: start: 20101221
  14. HIZENTRA [Suspect]
     Indication: IMMUNODEFICIENCY COMMON VARIABLE
     Dosage: SEE IMAGE
     Route: 058
     Dates: start: 20101221
  15. HIZENTRA [Suspect]
     Indication: IMMUNODEFICIENCY COMMON VARIABLE
     Dosage: SEE IMAGE
     Route: 058
     Dates: start: 20101221
  16. WELCHOL [Concomitant]
  17. ZOLOFT [Concomitant]
  18. NORVASC [Concomitant]
  19. NEFAZODONE HCL [Concomitant]
  20. ZOFRAN [Concomitant]
  21. ASPIRIN [Concomitant]
  22. VITAMIN D [Concomitant]
  23. ZETIA [Concomitant]
  24. ZEMPLAR (PARICALCITROL) [Concomitant]

REACTIONS (1)
  - INFLUENZA [None]
